FAERS Safety Report 4677503-8 (Version None)
Quarter: 2005Q2

REPORT INFORMATION
  Report Type: 
  Country: None (occurrence: None)
  Receive Date: 20050531
  Receipt Date: 20050527
  Transmission Date: 20051028
  Serious: Yes (Other)
  Sender: FDA-Public Use
  Company Number: PHNU2005DE02092

PATIENT
  Sex: Female
  Weight: 47 kg

DRUGS (2)
  1. RITALIN [Suspect]
     Indication: ATTENTION DEFICIT/HYPERACTIVITY DISORDER
     Dosage: UP TO 20 MG, QD
     Route: 048
     Dates: start: 20040901, end: 20041101
  2. RITALIN [Suspect]
     Route: 048
     Dates: start: 20050301

REACTIONS (1)
  - THROMBOCYTOPENIA [None]
